FAERS Safety Report 4808355-0 (Version None)
Quarter: 2005Q4

REPORT INFORMATION
  Report Type: 
  Country: None (occurrence: None)
  Receive Date: 20051021
  Receipt Date: 20051011
  Transmission Date: 20060501
  Serious: Yes (Hospitalization)
  Sender: FDA-Public Use
  Company Number: 2005129552

PATIENT
  Age: 82 Year
  Sex: Male

DRUGS (9)
  1. LIPITOR [Suspect]
     Indication: HYPERLIPIDAEMIA
     Dosage: 5 MG (DAILY), ORAL
     Route: 048
     Dates: start: 20050130, end: 20050829
  2. NARCARICIN (BENZBROMARONE) [Suspect]
     Indication: ILL-DEFINED DISORDER
     Dosage: 50 MG (DAILY), ORAL
     Route: 048
     Dates: start: 20020130, end: 20050829
  3. EBASTEL (EBASTINE) [Suspect]
     Indication: ILL-DEFINED DISORDER
     Dosage: 10 MG (DAILY), ORAL
     Route: 048
     Dates: start: 20050620, end: 20050829
  4. FAMOTIDINE [Concomitant]
  5. ACOMP (ALDIOXA) [Concomitant]
  6. THEO-DUR [Concomitant]
  7. MAGNESIUM OXIDE (MAGNESIUM OXIDE) [Concomitant]
  8. GASLON             (IRSOGLADINE MALEATE) [Concomitant]
  9. WASSWER V GRAN. (ASCORBIC ACID, CALCIUM PANTOTHENATE, NICOTINAMIDE, PY [Concomitant]

REACTIONS (1)
  - LIVER DISORDER [None]
